FAERS Safety Report 20214095 (Version 1)
Quarter: 2021Q4

REPORT INFORMATION
  Report Type: Spontaneous
  Country: US (occurrence: None)
  Receive Date: 20211221
  Receipt Date: 20211221
  Transmission Date: 20220303
  Serious: Yes (Other)
  Sender: FDA-Public Use
  Company Number: None

PATIENT
  Age: 33 Year
  Sex: Male

DRUGS (5)
  1. IMDEVIMAB [Suspect]
     Active Substance: IMDEVIMAB
     Indication: SARS-CoV-2 antibody test positive
     Dosage: FREQUENCY : ONCE;?
     Route: 042
     Dates: start: 20211219
  2. IMDEVIMAB [Suspect]
     Active Substance: IMDEVIMAB
     Indication: Tobacco user
  3. CASIRIVIMAB [Suspect]
     Active Substance: CASIRIVIMAB
     Indication: SARS-CoV-2 antibody test positive
     Dosage: FREQUENCY : ONCE;?
     Route: 042
  4. CASIRIVIMAB [Suspect]
     Active Substance: CASIRIVIMAB
     Indication: Tobacco user
  5. 0.9 % SODIUM CHLORIDE INJ USE 250ML [Concomitant]

REACTIONS (3)
  - Vomiting [None]
  - Nausea [None]
  - Hypophagia [None]

NARRATIVE: CASE EVENT DATE: 20211219
